FAERS Safety Report 5150625-3 (Version None)
Quarter: 2006Q4

REPORT INFORMATION
  Report Type: 
  Country: None (occurrence: None)
  Receive Date: 20061110
  Receipt Date: 20061110
  Transmission Date: 20070319
  Serious: Yes (Other)
  Sender: FDA-Public Use
  Company Number: None

PATIENT
  Age: 34 Year
  Sex: Female
  Weight: 63.5036 kg

DRUGS (2)
  1. ACETAMINOPHEN [Suspect]
     Indication: HEADACHE
     Dosage: 2PILLS  EVERY 4 HOURS  PO
     Route: 048
     Dates: start: 20061107, end: 20061109
  2. ACETAMINOPHEN [Suspect]
     Indication: PHARYNGOLARYNGEAL PAIN
     Dosage: 2PILLS  EVERY 4 HOURS  PO
     Route: 048
     Dates: start: 20061107, end: 20061109

REACTIONS (3)
  - MOUTH INJURY [None]
  - POOR QUALITY DRUG ADMINISTERED [None]
  - THERAPEUTIC PRODUCT CONTAMINATION [None]
